FAERS Safety Report 10987947 (Version 2)
Quarter: 2015Q2

REPORT INFORMATION
  Report Type: Spontaneous
  Country: US (occurrence: US)
  Receive Date: 20150404
  Receipt Date: 20150525
  Transmission Date: 20150821
  Serious: Yes (Disabling)
  Sender: FDA-Public Use
  Company Number: US-JNJFOC-20130803924

PATIENT
  Age: 52 Year
  Sex: Female
  Weight: 103.24 kg

DRUGS (9)
  1. VITAMIN D [Concomitant]
     Active Substance: CHOLECALCIFEROL
     Dosage: DOSAGE: 1000 UNITS
     Route: 048
  2. FERROUS SULFATE [Concomitant]
     Active Substance: FERROUS SULFATE\FERROUS SULFATE, DRIED
     Indication: IRON DEFICIENCY
     Route: 065
  3. METRONIDAZOLE. [Concomitant]
     Active Substance: METRONIDAZOLE
     Indication: CROHN^S DISEASE
     Route: 048
     Dates: start: 20090609, end: 20110621
  4. PROTONIX [Concomitant]
     Active Substance: PANTOPRAZOLE SODIUM
     Route: 048
  5. REMICADE [Suspect]
     Active Substance: INFLIXIMAB
     Indication: CROHN^S DISEASE
     Route: 042
     Dates: start: 20100109
  6. ALIGN NOS [Concomitant]
     Route: 065
     Dates: start: 20091029
  7. COLAZAL [Concomitant]
     Active Substance: BALSALAZIDE DISODIUM
     Indication: COLITIS
     Route: 065
     Dates: start: 20090612, end: 20110621
  8. SYMBICORT [Concomitant]
     Active Substance: BUDESONIDE\FORMOTEROL FUMARATE DIHYDRATE
     Dosage: DOSAGE: 160-4.5 MCG/ACT??1 PUFF INTO LUNGS 2 TIMES DAILY
     Route: 065
  9. PREDNISONE. [Concomitant]
     Active Substance: PREDNISONE
     Route: 065
     Dates: start: 201212

REACTIONS (5)
  - Periodontal disease [Unknown]
  - Interstitial lung disease [Not Recovered/Not Resolved]
  - Arthralgia [Unknown]
  - Dental caries [Unknown]
  - Hypertension [Unknown]

NARRATIVE: CASE EVENT DATE: 20110718
